FAERS Safety Report 4988393-8 (Version None)
Quarter: 2006Q2

REPORT INFORMATION
  Report Type: 
  Country: None (occurrence: None)
  Receive Date: 20060502
  Receipt Date: 20060425
  Transmission Date: 20061013
  Serious: Yes (Other)
  Sender: FDA-Public Use
  Company Number: CA-AVENTIS-200614419GDDC

PATIENT
  Age: 35 Year
  Sex: Male

DRUGS (4)
  1. KETEK [Suspect]
     Indication: BRONCHITIS
     Route: 048
     Dates: start: 20060419
  2. MONOCOR [Concomitant]
     Dosage: DOSE: UNK
     Route: 048
  3. HUMULIN N [Concomitant]
     Indication: DIABETES MELLITUS
     Dosage: DOSE: UNK
     Route: 058
  4. HUMALOG [Concomitant]
     Indication: DIABETES MELLITUS
     Dosage: DOSE: UNK
     Route: 058

REACTIONS (1)
  - BLOOD CREATININE INCREASED [None]
